FAERS Safety Report 8512064-4 (Version None)
Quarter: 2012Q2

REPORT INFORMATION
  Report Type: 
  Country: None (occurrence: None)
  Receive Date: 20120405
  Receipt Date: 20081020
  Transmission Date: 20120825
  Serious: Yes (Disabling)
  Sender: FDA-Public Use
  Company Number: PHEH2008US05887

PATIENT
  Age: 77 Year
  Sex: Female
  Weight: 45.4 kg

DRUGS (5)
  1. ASPIRIN [Concomitant]
  2. RECLAST [Suspect]
     Indication: OSTEOPOROSIS
  3. ADVAIR HFA [Concomitant]
  4. CALCIUM CARBONATE W/VITAMIN D NOS (CALCIUM CARBONATE, VITAMIN D NOS) [Concomitant]
  5. OXYGEN (OXYGEN) [Concomitant]

REACTIONS (3)
  - SLEEP DISORDER [None]
  - PAIN [None]
  - PARAESTHESIA [None]
